FAERS Safety Report 24802862 (Version 1)
Quarter: 2025Q1

REPORT INFORMATION
  Report Type: Spontaneous
  Country: US (occurrence: US)
  Receive Date: 20250103
  Receipt Date: 20250103
  Transmission Date: 20250408
  Serious: No
  Sender: ZYDUS PHARM
  Company Number: US-CADILA HEALTHCARE LIMITED-US-ZYDUS-111567

PATIENT

DRUGS (3)
  1. VENLAFAXINE HYDROCHLORIDE [Suspect]
     Active Substance: VENLAFAXINE HYDROCHLORIDE
     Indication: Anxiety
     Route: 048
     Dates: start: 202408
  2. VENLAFAXINE HYDROCHLORIDE [Suspect]
     Active Substance: VENLAFAXINE HYDROCHLORIDE
     Route: 048
  3. ASPIRIN [Concomitant]
     Active Substance: ASPIRIN
     Indication: Product used for unknown indication
     Route: 065

REACTIONS (17)
  - Feeling jittery [Recovered/Resolved]
  - Nervousness [Recovered/Resolved]
  - Chest discomfort [Recovered/Resolved]
  - Heart rate increased [Recovered/Resolved]
  - Chest pain [Recovered/Resolved]
  - Myalgia [Recovered/Resolved]
  - Neuralgia [Recovered/Resolved]
  - Arthralgia [Recovered/Resolved]
  - Hypertension [Recovered/Resolved]
  - Brain fog [Recovered/Resolved]
  - Product substitution issue [Not Recovered/Not Resolved]
  - Nausea [Unknown]
  - Drug hypersensitivity [Unknown]
  - Palpitations [Unknown]
  - Tremor [Not Recovered/Not Resolved]
  - Dizziness [Unknown]
  - Vertigo [Not Recovered/Not Resolved]

NARRATIVE: CASE EVENT DATE: 20240101
